FAERS Safety Report 6469996-0 (Version None)
Quarter: 2009Q4

REPORT INFORMATION
  Report Type: 
  Country: None (occurrence: None)
  Receive Date: 20091203
  Receipt Date: 20071221
  Transmission Date: 20100525
  Serious: Yes (Death, Life-Threatening)
  Sender: FDA-Public Use
  Company Number: DE-ELI_LILLY_AND_COMPANY-DE200712005073

PATIENT
  Sex: Male

DRUGS (1)
  1. BERLINSULIN 30% REGULAR, 70% NPH [Suspect]
     Indication: DIABETES MELLITUS
     Dosage: 20 IU, UNKNOWN
     Route: 058
     Dates: start: 20070416

REACTIONS (1)
  - SUDDEN DEATH [None]
